FAERS Safety Report 5792048-X (Version None)
Quarter: 2008Q2

REPORT INFORMATION
  Report Type: 
  Country: None (occurrence: None)
  Receive Date: 20080626
  Receipt Date: 20080618
  Transmission Date: 20081010
  Serious: Yes (Other)
  Sender: FDA-Public Use
  Company Number: PHEH2008US05492

PATIENT
  Age: 68 Year
  Sex: Male
  Weight: 99.773 kg

DRUGS (4)
  1. TEKTURNA [Suspect]
     Dosage: 300 MG, QD
  2. FOSAMAX [Concomitant]
  3. TOPROL-XL [Concomitant]
  4. COUMADIN [Concomitant]

REACTIONS (2)
  - BLOOD CREATININE INCREASED [None]
  - RENAL FAILURE [None]
